FAERS Safety Report 10275007 (Version 4)
Quarter: 2015Q3

REPORT INFORMATION
  Report Type: Spontaneous
  Country: DK (occurrence: DK)
  Receive Date: 20140703
  Receipt Date: 20150909
  Transmission Date: 20151125
  Serious: Yes (Other)
  Sender: FDA-Public Use
  Company Number: DK-ROCHE-1426313

PATIENT
  Age: 67 Year
  Sex: Female
  Weight: 55 kg

DRUGS (5)
  1. PREDNISOLON [Concomitant]
     Active Substance: PREDNISOLONE
     Dosage: 5-25 MG AS REQUIRED
     Route: 048
     Dates: start: 20041020, end: 20041110
  2. PREDNISOLON [Concomitant]
     Active Substance: PREDNISOLONE
     Route: 048
  3. BONVIVA [Suspect]
     Active Substance: IBANDRONATE SODIUM
     Indication: OSTEOPOROSIS
     Route: 048
     Dates: start: 20100615
  4. PROLIA [Suspect]
     Active Substance: DENOSUMAB
     Indication: OSTEOPOROSIS
     Dosage: STRENGTH: 60 MG/ML.
     Route: 058
     Dates: start: 20140215
  5. FOSAMAX [Suspect]
     Active Substance: ALENDRONATE SODIUM
     Indication: OSTEOPOROSIS
     Route: 048
     Dates: start: 20060615, end: 20140512

REACTIONS (7)
  - Osteonecrosis of jaw [Recovered/Resolved]
  - Jaw operation [Recovered/Resolved]
  - Infected fistula [Recovered/Resolved]
  - Mouth swelling [Recovered/Resolved]
  - Pain [Recovered/Resolved]
  - Tooth extraction [Recovered/Resolved]
  - Impaired healing [Recovered/Resolved]

NARRATIVE: CASE EVENT DATE: 20130624
